FAERS Safety Report 14162403 (Version 1)
Quarter: 2017Q4

REPORT INFORMATION
  Report Type: Spontaneous
  Country: CN (occurrence: CN)
  Receive Date: 20171106
  Receipt Date: 20171106
  Transmission Date: 20180321
  Serious: Yes (Hospitalization, Other)
  Sender: FDA-Public Use
  Company Number: CN-PFIZER INC-2017474348

PATIENT
  Age: 82 Year
  Sex: Female
  Weight: 52 kg

DRUGS (6)
  1. BUMETANIDE. [Concomitant]
     Active Substance: BUMETANIDE
     Indication: POLYURIA
     Dosage: 1 MG, 2X/DAY
     Route: 048
     Dates: start: 20170714, end: 20170909
  2. SPIROLACTONE [Concomitant]
     Active Substance: SPIRONOLACTONE
     Indication: POLYURIA
     Dosage: 20 MG, 1X/DAY
     Route: 048
     Dates: start: 20170714, end: 20170909
  3. INSULIN GLARGINE [Concomitant]
     Active Substance: INSULIN GLARGINE
     Indication: DIABETES MELLITUS
     Dosage: 14 IU, 1X/DAY
     Route: 058
     Dates: start: 20170714, end: 20170907
  4. LOTENSIN [Concomitant]
     Active Substance: BENAZEPRIL HYDROCHLORIDE
     Indication: HYPERTENSION
     Dosage: 10 MG, 1X/DAY
     Route: 048
     Dates: start: 20170714, end: 20170909
  5. WARFARIN SODIUM. [Concomitant]
     Active Substance: WARFARIN SODIUM
     Indication: COAGULOPATHY
     Dosage: 2 MG, 1X/DAY
     Route: 048
     Dates: start: 20170714, end: 20170907
  6. LIPITOR [Suspect]
     Active Substance: ATORVASTATIN CALCIUM
     Indication: AORTIC ARTERIOSCLEROSIS
     Dosage: 20 MG, 1X/DAY
     Route: 048
     Dates: start: 20170715, end: 20170907

REACTIONS (2)
  - Dyspnoea [Unknown]
  - Renal impairment [Recovering/Resolving]

NARRATIVE: CASE EVENT DATE: 201708
